FAERS Safety Report 13264334 (Version 1)
Quarter: 2017Q1

REPORT INFORMATION
  Report Type: Report from Study
  Country: US (occurrence: US)
  Receive Date: 20170223
  Receipt Date: 20170223
  Transmission Date: 20170428
  Serious: Yes (Death, Hospitalization, Other)
  Sender: FDA-Public Use
  Company Number: US-EMD SERONO-E2B_80051168

PATIENT
  Age: 63 Year
  Sex: Male

DRUGS (1)
  1. REBIF [Suspect]
     Active Substance: INTERFERON BETA-1A
     Indication: MULTIPLE SCLEROSIS
     Route: 058
     Dates: start: 20150218

REACTIONS (13)
  - Lethargy [Recovering/Resolving]
  - Dysphagia [Unknown]
  - Death [Fatal]
  - Overdose [Recovering/Resolving]
  - Speech disorder [Recovering/Resolving]
  - Hypophagia [Unknown]
  - Glassy eyes [Recovering/Resolving]
  - Injection site reaction [Not Recovered/Not Resolved]
  - Fall [Unknown]
  - Hypokinesia [Recovering/Resolving]
  - Muscular weakness [Not Recovered/Not Resolved]
  - Eye movement disorder [Not Recovered/Not Resolved]
  - Fine motor skill dysfunction [Not Recovered/Not Resolved]

NARRATIVE: CASE EVENT DATE: 201609
